FAERS Safety Report 18897486 (Version 1)
Quarter: 2021Q1

REPORT INFORMATION
  Report Type: Spontaneous
  Country: US (occurrence: US)
  Receive Date: 20210215
  Receipt Date: 20210215
  Transmission Date: 20210420
  Serious: No
  Sender: FDA-Public Use
  Company Number: US-BAUSCH-BL-2021-005183

PATIENT
  Sex: Female

DRUGS (2)
  1. POLYETHYLENE GLYCOL [Suspect]
     Active Substance: POLYETHYLENE GLYCOLS
     Indication: IRRITABLE BOWEL SYNDROME
     Route: 048
     Dates: start: 202001, end: 202001
  2. XIFAXAN [Suspect]
     Active Substance: RIFAXIMIN
     Indication: IRRITABLE BOWEL SYNDROME
     Dosage: PATIENT TOOK ONLY HER FIRST DOSE
     Route: 048
     Dates: start: 202001, end: 202001

REACTIONS (4)
  - Allergic reaction to excipient [Recovered/Resolved]
  - Pharyngeal swelling [Recovered/Resolved]
  - Abdominal discomfort [Recovered/Resolved]
  - Sensation of foreign body [Recovered/Resolved]

NARRATIVE: CASE EVENT DATE: 202001
